FAERS Safety Report 12241504 (Version 2)
Quarter: 2016Q3

REPORT INFORMATION
  Report Type: Report from Study
  Country: JP (occurrence: JP)
  Receive Date: 20160406
  Receipt Date: 20160705
  Transmission Date: 20161109
  Serious: Yes (Other)
  Sender: FDA-Public Use
  Company Number: JP-NOVOPROD-486103

PATIENT
  Age: 79 Year
  Sex: Male

DRUGS (5)
  1. NOVORAPID [Concomitant]
     Active Substance: INSULIN ASPART
     Dosage: UNK
     Route: 065
     Dates: start: 20150814
  2. SEIBULE [Concomitant]
     Active Substance: MIGLITOL
     Dosage: UNK
     Route: 048
     Dates: start: 20130130, end: 20150802
  3. SUREPOST [Suspect]
     Active Substance: REPAGLINIDE
     Indication: TYPE 2 DIABETES MELLITUS
     Dosage: 1.5 MG, QD
     Route: 048
     Dates: start: 20130130, end: 20150814
  4. TRESIBA CHU [Concomitant]
     Active Substance: INSULIN DEGLUDEC
     Dosage: UNK
     Route: 058
     Dates: start: 20150710
  5. METGLUCO [Concomitant]
     Active Substance: METFORMIN HYDROCHLORIDE
     Dosage: UNK
     Route: 048
     Dates: start: 20130130

REACTIONS (2)
  - Blood glucose increased [Unknown]
  - Pancreatic carcinoma [Recovering/Resolving]

NARRATIVE: CASE EVENT DATE: 20150701
